FAERS Safety Report 4680203-1 (Version None)
Quarter: 2005Q2

REPORT INFORMATION
  Report Type: 
  Country: None (occurrence: None)
  Receive Date: 20050531
  Receipt Date: 20050315
  Transmission Date: 20051028
  Serious: Yes (Hospitalization)
  Sender: FDA-Public Use
  Company Number: JP-2005-002255

PATIENT
  Age: 72 Year
  Sex: Female
  Weight: 39 kg

DRUGS (7)
  1. QUADRAMET [Suspect]
     Indication: METASTASES TO BONE
     Dosage: 748 MBQ, 1X/DAY, INTRAVENOUS
     Route: 042
     Dates: start: 20050118, end: 20050118
  2. AROMASIN [Concomitant]
  3. SOLETON (ZALTOPROFEN) [Concomitant]
  4. CONIEL (BENIDIPIEN HYDROCHLORIDE) [Concomitant]
  5. MUCOSTA (REBAMIPIDE) [Concomitant]
  6. AMOBAN (ZOPICLONE ) [Concomitant]
  7. PURSENNID               (SENNOSIDE A+B, SENNOSIDE A+B CALCIUM) [Concomitant]

REACTIONS (11)
  - ANOREXIA [None]
  - ARTHRALGIA [None]
  - BREAST CANCER METASTATIC [None]
  - CONDITION AGGRAVATED [None]
  - DYSURIA [None]
  - HAEMATURIA [None]
  - MALIGNANT NEOPLASM PROGRESSION [None]
  - PAIN [None]
  - PROTEUS INFECTION [None]
  - TUMOUR MARKER INCREASED [None]
  - URINARY TRACT INFECTION [None]
